FAERS Safety Report 6969140-7 (Version None)
Quarter: 2010Q3

REPORT INFORMATION
  Report Type: 
  Country: None (occurrence: None)
  Receive Date: 20100907
  Receipt Date: 20100708
  Transmission Date: 20110219
  Serious: No
  Sender: FDA-Public Use
  Company Number: US-TYCO HEALTHCARE/MALLINCKRODT-T201001666

PATIENT
  Sex: Female

DRUGS (1)
  1. EXALGO [Suspect]
     Dosage: UNK
     Dates: start: 20100601

REACTIONS (1)
  - PHOTOSENSITIVITY REACTION [None]
